FAERS Safety Report 5736177-5 (Version None)
Quarter: 2008Q2

REPORT INFORMATION
  Report Type: 
  Country: None (occurrence: None)
  Receive Date: 20080509
  Receipt Date: 20080509
  Transmission Date: 20081010
  Serious: Yes (Hospitalization)
  Sender: FDA-Public Use
  Company Number: None

PATIENT
  Age: 48 Year
  Sex: Female
  Weight: 58 kg

DRUGS (6)
  1. BEVACIZUMAB 10MG/KG [Suspect]
     Indication: HEAD AND NECK CANCER
     Dosage: 614 MG, Q 2 WKS, IV
     Route: 042
     Dates: start: 20080317
  2. BEVACIZUMAB 10MG/KG [Suspect]
     Indication: HEAD AND NECK CANCER
     Dosage: 614 MG, Q 2 WKS, IV
     Route: 042
     Dates: start: 20080331
  3. BEVACIZUMAB 10MG/KG [Suspect]
     Indication: HEAD AND NECK CANCER
     Dosage: 614 MG, Q 2 WKS, IV
     Route: 042
     Dates: start: 20080414
  4. BEVACIZUMAB 10MG/KG [Suspect]
     Indication: HEAD AND NECK CANCER
     Dosage: 614 MG, Q 2 WKS, IV
     Route: 042
     Dates: start: 20080428
  5. CISPLATIN [Suspect]
     Indication: HEAD AND NECK CANCER
     Dosage: 33MG DAYS 1-3 WKS 1+5 IV
     Route: 042
     Dates: start: 20080428, end: 20080430
  6. TARCEVA [Concomitant]

REACTIONS (7)
  - CONVULSION [None]
  - DISORIENTATION [None]
  - HYPERTENSION [None]
  - LEUKOENCEPHALOPATHY [None]
  - NAUSEA [None]
  - TONIC CLONIC MOVEMENTS [None]
  - VISUAL DISTURBANCE [None]
